FAERS Safety Report 7437247-6 (Version None)
Quarter: 2011Q2

REPORT INFORMATION
  Report Type: 
  Country: None (occurrence: None)
  Receive Date: 20110426
  Receipt Date: 20110414
  Transmission Date: 20111010
  Serious: Yes (Hospitalization)
  Sender: FDA-Public Use
  Company Number: FR-BRISTOL-MYERS SQUIBB COMPANY-15677156

PATIENT
  Sex: Male
  Weight: 98 kg

DRUGS (3)
  1. ONGLYZA [Suspect]
     Dosage: AUTHORIZATION NUMBER:22-350
     Dates: start: 20101202
  2. AMARYL [Suspect]
  3. METFORMINE [Suspect]

REACTIONS (1)
  - PANCREATITIS ACUTE [None]
